FAERS Safety Report 9733625 (Version 1)
Quarter: 2013Q4

REPORT INFORMATION
  Report Type: Spontaneous
  Country: US (occurrence: US)
  Receive Date: 20131205
  Receipt Date: 20131205
  Transmission Date: 20140711
  Serious: No
  Sender: FDA-Public Use
  Company Number: US-009507513-1311USA011864

PATIENT
  Age: 82 Year
  Sex: Male

DRUGS (1)
  1. NASONEX [Suspect]
     Indication: NASAL CONGESTION
     Dosage: 2-3 SPRAYS IN EACH NOSTRIL
     Route: 045
     Dates: start: 20131119

REACTIONS (2)
  - Drug ineffective [Not Recovered/Not Resolved]
  - Inappropriate schedule of drug administration [Unknown]
